FAERS Safety Report 6590215-9 (Version None)
Quarter: 2010Q1

REPORT INFORMATION
  Report Type: 
  Country: None (occurrence: None)
  Receive Date: 20100219
  Receipt Date: 20100212
  Transmission Date: 20100710
  Serious: No
  Sender: FDA-Public Use
  Company Number: US-B.I. PHARMACEUTICALS,INC./RIDGEFIELD-2010-BP-00979BP

PATIENT
  Sex: Female

DRUGS (2)
  1. SPIRIVA [Suspect]
     Indication: CHRONIC OBSTRUCTIVE PULMONARY DISEASE
     Dosage: 18 MCG
     Route: 055
     Dates: start: 20040101
  2. OXYGEN [Concomitant]

REACTIONS (5)
  - ARTHRITIS [None]
  - BLOOD POTASSIUM DECREASED [None]
  - HEART RATE INCREASED [None]
  - INCORRECT ROUTE OF DRUG ADMINISTRATION [None]
  - INFECTION [None]
